FAERS Safety Report 5528551-7 (Version None)
Quarter: 2007Q4

REPORT INFORMATION
  Report Type: 
  Country: None (occurrence: None)
  Receive Date: 20071121
  Receipt Date: 20071108
  Transmission Date: 20080405
  Serious: Yes (Hospitalization)
  Sender: FDA-Public Use
  Company Number: UKP07000240

PATIENT
  Sex: Female

DRUGS (1)
  1. DIDRONEL PMO(ETIDRONATE DISODIUM/CALCIUM CARBONAE CYCLICAL) TABLET, 40 [Suspect]
     Dosage: ORAL
     Route: 048

REACTIONS (1)
  - CEREBROVASCULAR ACCIDENT [None]
